FAERS Safety Report 7956975-7 (Version None)
Quarter: 2011Q4

REPORT INFORMATION
  Report Type: 
  Country: None (occurrence: None)
  Receive Date: 20111205
  Receipt Date: 20111205
  Transmission Date: 20120403
  Serious: No
  Sender: FDA-Public Use
  Company Number: None

PATIENT
  Age: 54 Year
  Sex: Female
  Weight: 89.811 kg

DRUGS (1)
  1. CIPROFLOXACIN [Suspect]
     Indication: PYREXIA
     Dosage: 500MG
     Dates: start: 20110927, end: 20111010

REACTIONS (6)
  - CONVULSION [None]
  - VIRAL INFECTION [None]
  - GAIT DISTURBANCE [None]
  - IMPAIRED WORK ABILITY [None]
  - PAIN IN EXTREMITY [None]
  - ARTHRALGIA [None]
